FAERS Safety Report 24205618 (Version 1)
Quarter: 2024Q3

REPORT INFORMATION
  Report Type: Spontaneous
  Country: FR (occurrence: FR)
  Receive Date: 20240813
  Receipt Date: 20240813
  Transmission Date: 20241017
  Serious: Yes (Other)
  Sender: GILEAD
  Company Number: None

PATIENT
  Age: 59 Year
  Sex: Female
  Weight: 79 kg

DRUGS (1)
  1. SACITUZUMAB GOVITECAN-HZIY [Suspect]
     Active Substance: SACITUZUMAB GOVITECAN-HZIY
     Indication: Breast cancer
     Dosage: 10MG/ KG  J1 - J8 / 21J
     Route: 065
     Dates: start: 20240416

REACTIONS (1)
  - Gastrointestinal motility disorder [Recovered/Resolved]

NARRATIVE: CASE EVENT DATE: 20240701
